FAERS Safety Report 8976029 (Version 1)
Quarter: 2012Q4

REPORT INFORMATION
  Report Type: 
  Country: US (occurrence: US)
  Receive Date: 20121219
  Receipt Date: 20121219
  Transmission Date: 20130627
  Serious: No
  Sender: FDA-Public Use
  Company Number: US-AMGEN-USASP2012068815

PATIENT
  Age: 65 Year
  Sex: Female
  Weight: 76.19 kg

DRUGS (33)
  1. PROLIA [Suspect]
     Indication: OSTEOPOROSIS
     Dosage: UNK
     Dates: start: 201205
  2. ADVAIR [Concomitant]
     Dosage: 500 mug, UNK
  3. ALBUTEROL                          /00139501/ [Concomitant]
     Dosage: 0.083 %, tid
  4. ASPIRIN [Concomitant]
     Dosage: 81 mg, qd
     Route: 048
  5. AZITHROMYCIN [Concomitant]
     Dosage: 250 mg, qd
     Route: 048
  6. BUMETANIDE [Concomitant]
     Dosage: 1 mg, qd
     Route: 048
  7. DULCOLAX                           /00064401/ [Concomitant]
     Dosage: UNK UNK, qd
     Route: 048
  8. FLUCONAZOLE [Concomitant]
     Dosage: 200 mg, qd
     Route: 048
  9. FUROSEMIDE [Concomitant]
     Dosage: 40 mg, UNK
     Route: 048
  10. GAS-X [Concomitant]
     Dosage: 125 mg, qd
     Route: 048
  11. IMDUR [Concomitant]
     Dosage: 30 mg, qd
     Route: 048
  12. ISOSORBIDE MONONITRATE [Concomitant]
     Dosage: 30 mg, qd
     Route: 048
  13. KEFLEX                             /00145501/ [Concomitant]
     Dosage: 500 mg, qid
     Route: 048
  14. KLOR-CON M10 [Concomitant]
     Dosage: UNK UNK, qd
     Route: 048
  15. LASIX                              /00032601/ [Concomitant]
     Indication: OEDEMA
     Dosage: 40 mg, qd
     Route: 048
  16. METFORMIN [Concomitant]
     Dosage: 250 mg, qd
     Route: 048
  17. MIRALAX                            /00754501/ [Concomitant]
     Dosage: 17 g, qd
     Route: 048
  18. MUCINEX [Concomitant]
     Dosage: 1200 mg, qd
     Route: 048
  19. NEXIUM                             /01479302/ [Concomitant]
     Dosage: 40 mg, qd
     Route: 048
  20. NIX [Concomitant]
     Dosage: 1 %, UNK
     Route: 061
  21. POLYETHYLENE GLYCOL [Concomitant]
     Dosage: UNK UNK, qd
  22. POTASSIUM CHLORIDE [Concomitant]
     Dosage: 10 mEq, qd
     Route: 048
  23. PROAIR HFA [Concomitant]
     Dosage: 90 mug, UNK
  24. SENNA                              /00142201/ [Concomitant]
     Dosage: 8.6 mg, qd
     Route: 048
  25. SIMVASTATIN [Concomitant]
     Dosage: 20 mg, qd
     Route: 048
  26. SINGULAIR [Concomitant]
     Dosage: 10 mg, qd
     Route: 048
  27. SPIRIVA [Concomitant]
     Dosage: 18 mug, qd
  28. TRAMADOL [Concomitant]
     Dosage: 50 mg, prn
     Route: 048
  29. VICODIN [Concomitant]
     Dosage: 5 mg, prn
     Route: 048
  30. VITAMIN D2 [Concomitant]
     Dosage: 50000 IU, UNK
     Route: 048
  31. VOLTAREN T [Concomitant]
     Dosage: 1 %, qid
     Route: 061
  32. ZOCOR [Concomitant]
     Dosage: 20 mg, qd
     Route: 048
  33. ZYRTEC [Concomitant]
     Dosage: 10 mg, qd
     Route: 048

REACTIONS (16)
  - Joint range of motion decreased [Unknown]
  - Joint stiffness [Unknown]
  - Pain [Unknown]
  - Headache [Unknown]
  - Paraesthesia [Unknown]
  - Chills [Unknown]
  - Pyrexia [Unknown]
  - Nausea [Unknown]
  - Arthralgia [Unknown]
  - Joint swelling [Unknown]
  - Rheumatoid arthritis [Unknown]
  - Neuralgia [Unknown]
  - Neck pain [Unknown]
  - Tenderness [Unknown]
  - Myalgia [Unknown]
  - Pain in extremity [Unknown]
